FAERS Safety Report 23721444 (Version 1)
Quarter: 2024Q2

REPORT INFORMATION
  Report Type: Report from Study
  Country: US (occurrence: US)
  Receive Date: 20240409
  Receipt Date: 20240409
  Transmission Date: 20240715
  Serious: Yes (Other)
  Sender: FDA-Public Use
  Company Number: US-ABBVIE-5708709

PATIENT
  Age: 54 Year
  Sex: Male

DRUGS (1)
  1. HUMIRA [Suspect]
     Active Substance: ADALIMUMAB
     Indication: Psoriatic arthropathy
     Route: 058
     Dates: start: 20080715

REACTIONS (10)
  - Cataract [Unknown]
  - Skin bacterial infection [Recovered/Resolved with Sequelae]
  - Tinnitus [Unknown]
  - Vertigo [Unknown]
  - Arthralgia [Recovering/Resolving]
  - Back pain [Recovering/Resolving]
  - Furuncle [Recovered/Resolved with Sequelae]
  - Skin necrosis [Recovered/Resolved with Sequelae]
  - Visual impairment [Unknown]
  - Scar [Unknown]

NARRATIVE: CASE EVENT DATE: 20220101
